APPROVED DRUG PRODUCT: BUPROPION HYDROCHLORIDE
Active Ingredient: BUPROPION HYDROCHLORIDE
Strength: 100MG
Dosage Form/Route: TABLET;ORAL
Application: A075491 | Product #002 | TE Code: AB
Applicant: AUROBINDO PHARMA USA INC
Approved: Apr 17, 2000 | RLD: No | RS: No | Type: RX